FAERS Safety Report 4654661-2 (Version None)
Quarter: 2005Q2

REPORT INFORMATION
  Report Type: 
  Country: None (occurrence: None)
  Receive Date: 20050506
  Receipt Date: 20050504
  Transmission Date: 20051028
  Serious: Yes (Death, Hospitalization)
  Sender: FDA-Public Use
  Company Number: US-BRISTOL-MYERS SQUIBB COMPANY-12957254

PATIENT
  Age: 48 Year
  Sex: Male
  Weight: 114 kg

DRUGS (3)
  1. CETUXIMAB [Suspect]
     Indication: PANCREATIC CARCINOMA
     Dosage: DAY 1, CYCLE 1 04-MAY-2005. TOTAL DOSE ORDERED 976 MG. TOTAL DOSE ADMINISTERED THIS COURSE 122 MG.
     Route: 042
     Dates: start: 20050504, end: 20050504
  2. GEMCITABINE HCL [Suspect]
     Indication: PANCREATIC CARCINOMA
     Dosage: SAE OCCURRED PRIOR TO GEMCITABINE ADMINISTRATION. TOTAL DOSE ADMINISTERED THIS COURSE 0 MG.
  3. DIPHENHYDRAMINE HCL [Concomitant]
     Indication: PREMEDICATION
     Dosage: DIPHENHYDRAMINE 50 MG IV PRIOR TO CETUXIMAB.
     Route: 042

REACTIONS (5)
  - CARDIO-RESPIRATORY ARREST [None]
  - HYPERSENSITIVITY [None]
  - LOSS OF CONSCIOUSNESS [None]
  - MYOCARDIAL INFARCTION [None]
  - MYOCARDIAL ISCHAEMIA [None]
